FAERS Safety Report 4497916-7 (Version None)
Quarter: 2004Q4

REPORT INFORMATION
  Report Type: 
  Country: None (occurrence: None)
  Receive Date: 20041105
  Receipt Date: 20041025
  Transmission Date: 20050328
  Serious: Yes (Death, Other)
  Sender: FDA-Public Use
  Company Number: 2004076204

PATIENT
  Sex: Female

DRUGS (2)
  1. ZYRTEC [Suspect]
     Indication: HYPERSENSITIVITY
     Dates: start: 20030101
  2. MONTELUKAST SODIUM (MONTELUKAST SODIUM) [Suspect]
     Indication: HYPERSENSITIVITY
     Dates: start: 20030101

REACTIONS (1)
  - DRUG EFFECT DECREASED [None]
